FAERS Safety Report 4944033-5 (Version None)
Quarter: 2006Q1

REPORT INFORMATION
  Report Type: 
  Country: None (occurrence: None)
  Receive Date: 20060315
  Receipt Date: 20050902
  Transmission Date: 20060701
  Serious: Yes (Other)
  Sender: FDA-Public Use
  Company Number: PHEH2005US09873

PATIENT
  Age: 83 Year
  Sex: Male

DRUGS (15)
  1. ZOMETA [Suspect]
     Indication: PROSTATE CANCER METASTATIC
     Dosage: 4 MG MONTHLY
     Route: 042
     Dates: start: 20040630, end: 20050805
  2. TAXOTERE [Concomitant]
     Dosage: 60 MG, ON 3 WEEKS AND OFF ONE
     Dates: start: 20041124, end: 20060106
  3. STEROIDS NOS [Concomitant]
  4. CASODEX [Concomitant]
     Dosage: 50 MG, DAILY
  5. SIMVASTATIN [Concomitant]
     Dosage: 20 MG, QD
  6. BACTRIM [Concomitant]
     Dosage: 1 UNK, QD
  7. KYTRIL [Concomitant]
     Dosage: 1 MG, UNK
     Dates: start: 20041104, end: 20060106
  8. DEXAMETHASONE [Concomitant]
     Dosage: 10 MG, UNK
     Dates: start: 20041104, end: 20060106
  9. ALBUTEROL [Concomitant]
     Indication: ASTHMA
     Dosage: UNK, PRN
  10. FAMOTIDINE [Concomitant]
     Dosage: 20 MG, UNK
  11. ADVAIR DISKUS 100/50 [Concomitant]
     Dosage: UNK, PRN
  12. POTASSIUM [Concomitant]
     Dosage: 80 MEQ, DAILY
     Dates: start: 20060222
  13. POTASSIUM [Concomitant]
     Dosage: 80 MEQ, DAILY
     Dates: start: 20060222
  14. LUPRON [Concomitant]
     Dosage: 7.5 UNK, UNK
  15. ASCORBIC ACID [Concomitant]
     Dosage: 1 UNK, DAILY

REACTIONS (11)
  - EATING DISORDER [None]
  - ENANTHEMA [None]
  - LOCAL SWELLING [None]
  - LYMPH NODE PAIN [None]
  - LYMPHADENOPATHY [None]
  - ORAL PAIN [None]
  - OSTEOMYELITIS [None]
  - OSTEONECROSIS [None]
  - SOFT TISSUE INFECTION [None]
  - TOOTH EXTRACTION [None]
  - TOOTHACHE [None]
